FAERS Safety Report 6464234-7 (Version None)
Quarter: 2009Q4

REPORT INFORMATION
  Report Type: 
  Country: None (occurrence: None)
  Receive Date: 20091201
  Receipt Date: 20090818
  Transmission Date: 20100525
  Serious: Yes (Other)
  Sender: FDA-Public Use
  Company Number: PHHY2009ES33448

PATIENT
  Age: 32 Year
  Sex: Female

DRUGS (4)
  1. EXTAVIA [Suspect]
     Indication: MULTIPLE SCLEROSIS
     Dosage: DOSE 0.50
     Dates: start: 20090730
  2. EXTAVIA [Suspect]
     Dosage: 7.5 MG, UNK
  3. EXTAVIA [Suspect]
     Dosage: 0.6 MG, UNK
     Route: 048
  4. AMANTADINE [Concomitant]

REACTIONS (2)
  - DEPRESSION [None]
  - INFLUENZA [None]
